FAERS Safety Report 24454312 (Version 2)
Quarter: 2024Q4

REPORT INFORMATION
  Report Type: Report from Study
  Country: US (occurrence: US)
  Receive Date: 20241017
  Receipt Date: 20241018
  Transmission Date: 20250114
  Serious: No
  Sender: ROCHE
  Company Number: US-ROCHE-3431787

PATIENT
  Age: 67 Year
  Sex: Female

DRUGS (6)
  1. RITUXAN [Suspect]
     Active Substance: RITUXIMAB
     Indication: Immune system disorder
     Dosage: STRENGTH : 375 MG/M2
     Route: 041
     Dates: start: 20230921
  2. VITAMIN D [Concomitant]
     Active Substance: VITAMIN D NOS
  3. GABAPENTIN [Concomitant]
     Active Substance: GABAPENTIN
  4. TRAZODONE [Concomitant]
     Active Substance: TRAZODONE HYDROCHLORIDE
  5. ESCITALOPRAM [Concomitant]
     Active Substance: ESCITALOPRAM OXALATE
  6. LEVOTHYROXINE [Concomitant]
     Active Substance: LEVOTHYROXINE

REACTIONS (2)
  - Off label use [Unknown]
  - No adverse event [Unknown]
